FAERS Safety Report 18255167 (Version 1)
Quarter: 2020Q3

REPORT INFORMATION
  Report Type: Spontaneous
  Country: ES (occurrence: ES)
  Receive Date: 20200911
  Receipt Date: 20200911
  Transmission Date: 20201103
  Serious: Yes (Hospitalization, Other)
  Sender: FDA-Public Use
  Company Number: ES-AUROBINDO-AUR-APL-2020-047308

PATIENT
  Age: 40 Year
  Sex: Male

DRUGS (2)
  1. FINASTERIDE. [Suspect]
     Active Substance: FINASTERIDE
     Indication: ANDROGENETIC ALOPECIA
     Dosage: 1 MILLIGRAM, ONCE A DAY
     Route: 048
     Dates: start: 20200304
  2. TINNITAN DUO [Suspect]
     Active Substance: GINKGO\MINERALS\VITAMINS
     Indication: TINNITUS
     Dosage: 1 DOSAGE FORM, TWO TIMES A DAY (1?0?1)
     Route: 048
     Dates: start: 20200305, end: 20200517

REACTIONS (1)
  - Thrombotic thrombocytopenic purpura [Recovering/Resolving]

NARRATIVE: CASE EVENT DATE: 20200515
